FAERS Safety Report 10020319 (Version 1)
Quarter: 2014Q1

REPORT INFORMATION
  Report Type: Report from Study
  Country: US (occurrence: US)
  Receive Date: 20140319
  Receipt Date: 20140319
  Transmission Date: 20141002
  Serious: Yes (Other)
  Sender: FDA-Public Use
  Company Number: US-ROCHE-1361297

PATIENT
  Age: 16 Year
  Sex: Male
  Weight: 44.4 kg

DRUGS (17)
  1. NUTROPIN AQ [Suspect]
     Indication: RENAL FAILURE CHRONIC
     Route: 058
  2. CALCITRIOL [Concomitant]
     Route: 048
  3. ARANESP [Concomitant]
     Route: 058
  4. FERROUS SULFATE [Concomitant]
     Route: 048
  5. MINOXIDIL [Concomitant]
     Route: 048
  6. RENVELA [Concomitant]
     Dosage: 4 TABS WITH MEALS AND SNACKS
     Route: 048
  7. NEPHRO-VITE [Concomitant]
     Route: 065
  8. SODIUM BICARBONATE [Concomitant]
     Route: 048
  9. PROTONIX (OMEPRAZOLE) [Concomitant]
     Route: 048
  10. ZANTAC [Concomitant]
     Route: 048
  11. ZOLOFT [Concomitant]
     Route: 048
  12. ATARAX (UNITED STATES) [Concomitant]
     Dosage: QHS
     Route: 048
  13. BUSPAR [Concomitant]
     Dosage: 10 MG AT AM AND 5 MG AT PM
     Route: 048
  14. FERRLECIT (UNITED STATES) [Concomitant]
     Dosage: PRN
     Route: 042
  15. NIFEDIPINE [Concomitant]
     Dosage: PRN
     Route: 048
  16. MIRALAX [Concomitant]
     Dosage: PRN
     Route: 048
  17. ZOFRAN [Concomitant]
     Dosage: PRN
     Route: 048

REACTIONS (7)
  - Pyrexia [Unknown]
  - Upper respiratory tract infection [Unknown]
  - Granuloma [Unknown]
  - Nasal congestion [Unknown]
  - Periorbital oedema [Unknown]
  - Eczema [Unknown]
  - Blood pressure increased [Unknown]
